FAERS Safety Report 24696767 (Version 1)
Quarter: 2024Q4

REPORT INFORMATION
  Report Type: Spontaneous
  Country: FR (occurrence: FR)
  Receive Date: 20241204
  Receipt Date: 20241204
  Transmission Date: 20250115
  Serious: Yes (Life-Threatening)
  Sender: NORDIC PHARMA
  Company Number: None

PATIENT
  Age: 78 Year
  Sex: Female
  Weight: 48 kg

DRUGS (7)
  1. METHOTREXATE [Suspect]
     Active Substance: METHOTREXATE
     Indication: Rheumatoid arthritis
     Route: 048
     Dates: start: 20240930, end: 20241015
  2. METHOTREXATE [Suspect]
     Active Substance: METHOTREXATE
     Indication: Rheumatoid arthritis
     Route: 048
     Dates: end: 20240930
  3. ELIQUIS [Concomitant]
     Active Substance: APIXABAN
  4. ZOPICLONE [Concomitant]
     Active Substance: ZOPICLONE
  5. ESCITALOPRAM [Concomitant]
     Active Substance: ESCITALOPRAM OXALATE
  6. FLECAINIDE [Concomitant]
     Active Substance: FLECAINIDE
  7. GABAPENTIN [Concomitant]
     Active Substance: GABAPENTIN

REACTIONS (6)
  - Drug eruption [Recovering/Resolving]
  - Inappropriate schedule of product administration [Recovered/Resolved]
  - Mucosal inflammation [Recovering/Resolving]
  - Pancytopenia [Recovered/Resolved]
  - Cheilitis [Recovering/Resolving]
  - Accidental overdose [Recovered/Resolved]

NARRATIVE: CASE EVENT DATE: 20240930
